FAERS Safety Report 17610407 (Version 4)
Quarter: 2021Q2

REPORT INFORMATION
  Report Type: Spontaneous
  Country: US (occurrence: US)
  Receive Date: 20200401
  Receipt Date: 20210505
  Transmission Date: 20210716
  Serious: Yes (Hospitalization, Other)
  Sender: FDA-Public Use
  Company Number: US-PFIZER INC-2020133605

PATIENT
  Age: 85 Year
  Sex: Female
  Weight: 72.57 kg

DRUGS (1)
  1. XELJANZ [Suspect]
     Active Substance: TOFACITINIB CITRATE
     Indication: RHEUMATOID ARTHRITIS
     Dosage: 5 MG, 2X/DAY(TWO 5MG A DAY , ONE IN THE MORNING AND ONE IN EVENING )

REACTIONS (2)
  - Thrombosis [Unknown]
  - Asthenia [Unknown]
